FAERS Safety Report 4387266-1 (Version None)
Quarter: 2004Q2

REPORT INFORMATION
  Report Type: 
  Country: None (occurrence: None)
  Receive Date: 20040630
  Receipt Date: 20040401
  Transmission Date: 20050107
  Serious: No
  Sender: FDA-Public Use
  Company Number: US-GLAXOSMITHKLINE-A0505592A

PATIENT
  Age: 6 Year
  Sex: Male

DRUGS (6)
  1. ADVAIR HFA [Suspect]
     Dosage: 1PUFF TWICE PER DAY
     Route: 055
     Dates: start: 20030401, end: 20040301
  2. NEXIUM [Concomitant]
  3. SINGULAIR [Concomitant]
  4. ZYRTEC [Concomitant]
  5. XOPENEX [Concomitant]
  6. PREVACID [Concomitant]

REACTIONS (2)
  - COUGH [None]
  - SINUSITIS [None]
